FAERS Safety Report 6118564-9 (Version None)
Quarter: 2009Q1

REPORT INFORMATION
  Report Type: 
  Country: None (occurrence: None)
  Receive Date: 20090314
  Receipt Date: 20090225
  Transmission Date: 20090719
  Serious: No
  Sender: FDA-Public Use
  Company Number: US-ABBOTT-09P-163-0559085-00

PATIENT
  Sex: Female
  Weight: 82.174 kg

DRUGS (3)
  1. HUMIRA [Suspect]
     Indication: CROHN'S DISEASE
     Dosage: DAY 1
     Route: 058
     Dates: start: 20081105, end: 20081105
  2. HUMIRA [Suspect]
     Dosage: ON DAY 15
     Route: 058
  3. HUMIRA [Suspect]

REACTIONS (2)
  - INCORRECT DOSE ADMINISTERED [None]
  - INJECTION SITE NODULE [None]
